FAERS Safety Report 21508556 (Version 1)
Quarter: 2022Q4

REPORT INFORMATION
  Report Type: Spontaneous
  Country: US (occurrence: US)
  Receive Date: 20221026
  Receipt Date: 20221026
  Transmission Date: 20230113
  Serious: No
  Sender: FDA-Public Use
  Company Number: US-ENDO PHARMACEUTICALS INC-2022-000624

PATIENT
  Age: 46 Year
  Sex: Female

DRUGS (3)
  1. QWO [Suspect]
     Active Substance: COLLAGENASE CLOSTRIDIUM HISTOLYTICUM-AAES
     Indication: Cellulite
     Dosage: UNK UNKNOWN, UNKNOWN (TREATMENT ONE)
     Route: 058
     Dates: start: 20211025
  2. QWO [Suspect]
     Active Substance: COLLAGENASE CLOSTRIDIUM HISTOLYTICUM-AAES
     Dosage: UNK UNKNOWN, UNKNOWN (TREATMENT TWO)
     Route: 058
     Dates: start: 2021
  3. QWO [Suspect]
     Active Substance: COLLAGENASE CLOSTRIDIUM HISTOLYTICUM-AAES
     Dosage: UNK UNKNOWN, UNKNOWN (TREATMENT THREE)
     Route: 058
     Dates: start: 20220130

REACTIONS (7)
  - Contusion [Not Recovered/Not Resolved]
  - Swelling [Not Recovered/Not Resolved]
  - Skin warm [Not Recovered/Not Resolved]
  - Oedema [Not Recovered/Not Resolved]
  - Pain [Not Recovered/Not Resolved]
  - Erythema [Not Recovered/Not Resolved]
  - Inappropriate schedule of product administration [Unknown]

NARRATIVE: CASE EVENT DATE: 20211026
